FAERS Safety Report 10189177 (Version 1)
Quarter: 2014Q2

REPORT INFORMATION
  Report Type: Spontaneous
  Country: US (occurrence: None)
  Receive Date: 20140521
  Receipt Date: 20140521
  Transmission Date: 20141212
  Serious: No
  Sender: FDA-Public Use
  Company Number: None

PATIENT
  Age: 30 Year
  Sex: Female

DRUGS (1)
  1. KYNAMRO [Suspect]
     Dosage: 200 MG PFS  ONCE/WEEK  SUB-Q
     Route: 058
     Dates: start: 20130909

REACTIONS (1)
  - Hepatotoxicity [None]
